FAERS Safety Report 9691883 (Version 2)
Quarter: 2013Q4

REPORT INFORMATION
  Report Type: Spontaneous
  Country: GB (occurrence: GB)
  Receive Date: 20131117
  Receipt Date: 20131128
  Transmission Date: 20140711
  Serious: Yes (Hospitalization)
  Sender: FDA-Public Use
  Company Number: GB-BRISTOL-MYERS SQUIBB COMPANY-19816578

PATIENT
  Age: 58 Year
  Sex: Female

DRUGS (4)
  1. FORXIGA [Suspect]
  2. METFORMIN HCL [Suspect]
  3. GLIMEPIRIDE [Suspect]
  4. SITAGLIPTIN PHOSPHATE [Suspect]

REACTIONS (2)
  - Ketoacidosis [Recovering/Resolving]
  - Blood glucose increased [Recovering/Resolving]
